FAERS Safety Report 8797251 (Version 1)
Quarter: 2012Q4

REPORT INFORMATION
  Report Type: 
  Country: US (occurrence: US)
  Receive Date: 20120919
  Receipt Date: 20120919
  Transmission Date: 20130627
  Serious: No
  Sender: FDA-Public Use
  Company Number: US-JNJFOC-20120902469

PATIENT
  Sex: Male

DRUGS (10)
  1. DURAGESIC [Suspect]
     Indication: PRODUCT USED FOR UNKNOWN INDICATION
     Route: 062
     Dates: start: 201103, end: 2011
  2. DURAGESIC [Suspect]
     Indication: PRODUCT USED FOR UNKNOWN INDICATION
     Route: 062
     Dates: start: 2011
  3. DURAGESIC [Suspect]
     Indication: PRODUCT USED FOR UNKNOWN INDICATION
     Route: 062
     Dates: start: 2011, end: 201106
  4. FENTANYL [Suspect]
     Indication: PRODUCT USED FOR UNKNOWN INDICATION
     Route: 062
     Dates: start: 2011, end: 2011
  5. FENTANYL TRANSDERMAL SYSTEM [Suspect]
     Indication: PRODUCT USED FOR UNKNOWN INDICATION
     Route: 062
     Dates: start: 2011, end: 2011
  6. DURAGESIC [Suspect]
     Indication: PRODUCT USED FOR UNKNOWN INDICATION
     Route: 062
     Dates: start: 201106, end: 201112
  7. DURAGESIC [Suspect]
     Indication: PRODUCT USED FOR UNKNOWN INDICATION
     Route: 062
     Dates: start: 201112
  8. FENTANYL [Suspect]
     Indication: PRODUCT USED FOR UNKNOWN INDICATION
     Route: 065
     Dates: start: 2011
  9. GABAPENTIN [Concomitant]
     Indication: NEURALGIA
     Route: 065
     Dates: end: 201112
  10. BACLOFEN [Concomitant]
     Indication: NEURALGIA
     Route: 065
     Dates: end: 201112

REACTIONS (11)
  - Product quality issue [Recovered/Resolved]
  - Drug ineffective [Recovering/Resolving]
  - Application site reaction [Recovered/Resolved]
  - Drug resistance [Unknown]
  - Breakthrough pain [Recovering/Resolving]
  - Drug effect increased [Recovered/Resolved]
  - Miosis [Recovered/Resolved]
  - Psychomotor hyperactivity [Recovered/Resolved]
  - Drug effect decreased [Recovered/Resolved]
  - Product packaging quantity issue [Unknown]
  - Application site erythema [None]
